FAERS Safety Report 21453380 (Version 1)
Quarter: 2022Q4

REPORT INFORMATION
  Report Type: Report from Study
  Country: US (occurrence: US)
  Receive Date: 20221013
  Receipt Date: 20221013
  Transmission Date: 20230113
  Serious: No
  Sender: FDA-Public Use
  Company Number: US-ABBVIE-4141856

PATIENT

DRUGS (2)
  1. MAVYRET [Suspect]
     Active Substance: GLECAPREVIR\PIBRENTASVIR
     Indication: Product used for unknown indication
     Route: 048
  2. Covid -19 Vaccine [Concomitant]
     Indication: COVID-19 immunisation
     Route: 030

REACTIONS (4)
  - Rash [Unknown]
  - Frequent bowel movements [Unknown]
  - Nasal congestion [Unknown]
  - Poor quality sleep [Unknown]
